FAERS Safety Report 7574122-0 (Version None)
Quarter: 2011Q2

REPORT INFORMATION
  Report Type: 
  Country: None (occurrence: None)
  Receive Date: 20110627
  Receipt Date: 20110614
  Transmission Date: 20111010
  Serious: Yes (Hospitalization)
  Sender: FDA-Public Use
  Company Number: PHHY2011FR52778

PATIENT
  Sex: Male

DRUGS (4)
  1. AMLODIPINE [Concomitant]
     Dosage: UNK UKN, UNK
  2. VOLTAREN [Suspect]
     Indication: PAIN
     Dosage: UNK UKN, UNK
     Route: 048
     Dates: start: 20110110, end: 20110117
  3. ROCEPHIN [Concomitant]
     Dosage: UNK UKN, UNK
  4. BIPRETERAX [Suspect]
     Indication: HYPERTENSION
     Dosage: UNK UKN, UNK
     Route: 048
     Dates: end: 20110117

REACTIONS (12)
  - INFLAMMATION [None]
  - PROSTATITIS [None]
  - ARTHRALGIA [None]
  - RENAL FAILURE ACUTE [None]
  - GENERAL PHYSICAL HEALTH DETERIORATION [None]
  - HYPERKALAEMIA [None]
  - BLOOD CREATININE INCREASED [None]
  - PALINDROMIC RHEUMATISM [None]
  - TUBULOINTERSTITIAL NEPHRITIS [None]
  - PROTEINURIA [None]
  - RENAL IMPAIRMENT [None]
  - DRUG HYPERSENSITIVITY [None]
